FAERS Safety Report 4752463-X (Version None)
Quarter: 2005Q3

REPORT INFORMATION
  Report Type: 
  Country: None (occurrence: None)
  Receive Date: 20050823
  Receipt Date: 20050811
  Transmission Date: 20060218
  Serious: No
  Sender: FDA-Public Use
  Company Number: 05H-082-0302045-00

PATIENT

DRUGS (1)
  1. HEPARIN SODIUM [Suspect]
     Dosage: INTRAVENOUS
     Route: 042

REACTIONS (2)
  - BACTERAEMIA [None]
  - PHARMACEUTICAL PRODUCT COMPLAINT [None]
